FAERS Safety Report 12789297 (Version 3)
Quarter: 2018Q2

REPORT INFORMATION
  Report Type: Report from Study
  Country: US (occurrence: US)
  Receive Date: 20160928
  Receipt Date: 20180528
  Transmission Date: 20180711
  Serious: Yes (Hospitalization)
  Sender: FDA-Public Use
  Company Number: US-MALLINCKRODT-T201604489

PATIENT
  Age: 39 Year
  Sex: Female
  Weight: 163 kg

DRUGS (2)
  1. REPOSITORY CORTICOTROPIN INJECTION [Suspect]
     Active Substance: CORTICOTROPIN
     Indication: SARCOIDOSIS
     Dosage: 80 UNITS EVERY 3 DAYS (72HRS)
     Route: 058
     Dates: start: 20150812
  2. REPOSITORY CORTICOTROPIN INJECTION [Suspect]
     Active Substance: CORTICOTROPIN
     Dosage: UNK
     Route: 065
     Dates: start: 20160101

REACTIONS (3)
  - Alopecia [Not Recovered/Not Resolved]
  - Product storage error [Not Recovered/Not Resolved]
  - Sarcoidosis [Recovering/Resolving]

NARRATIVE: CASE EVENT DATE: 2016
